FAERS Safety Report 7475267-6 (Version None)
Quarter: 2011Q2

REPORT INFORMATION
  Report Type: 
  Country: None (occurrence: None)
  Receive Date: 20110509
  Receipt Date: 20110509
  Transmission Date: 20111010
  Serious: Yes (Other)
  Sender: FDA-Public Use
  Company Number: None

PATIENT
  Age: 43 Year
  Sex: Male
  Weight: 53.978 kg

DRUGS (4)
  1. UROXATRAL [Suspect]
     Indication: URINARY RETENTION
     Dosage: 10 MG DAY AT BEDTIME ORALLY
     Route: 048
     Dates: start: 20110208
  2. UROXATRAL [Suspect]
     Indication: MUSCLE DISORDER
     Dosage: 10 MG DAY AT BEDTIME ORALLY
     Route: 048
     Dates: start: 20110208
  3. UROXATRAL [Suspect]
     Indication: URINARY RETENTION
     Dosage: 10 MG DAY AT BEDTIME ORALLY
     Route: 048
     Dates: start: 20110329
  4. UROXATRAL [Suspect]
     Indication: MUSCLE DISORDER
     Dosage: 10 MG DAY AT BEDTIME ORALLY
     Route: 048
     Dates: start: 20110329

REACTIONS (1)
  - HEPATIC ENZYME INCREASED [None]
